FAERS Safety Report 12395983 (Version 1)
Quarter: 2016Q2

REPORT INFORMATION
  Report Type: Spontaneous
  Country: US (occurrence: US)
  Receive Date: 20160523
  Receipt Date: 20160523
  Transmission Date: 20160815
  Serious: Yes (Other)
  Sender: FDA-Public Use
  Company Number: PHHY2016US067838

PATIENT
  Age: 29 Year
  Sex: Male

DRUGS (2)
  1. DOXORUBICIN [Suspect]
     Active Substance: DOXORUBICIN
     Indication: CHEMOTHERAPY
     Dosage: 350 MG/M2
     Route: 065
  2. LEVOTHYROXINE. [Concomitant]
     Active Substance: LEVOTHYROXINE
     Indication: HYPERTHYROIDISM
     Dosage: 137 MG/M2, QD
     Route: 065

REACTIONS (4)
  - Dysphonia [Recovered/Resolved]
  - Swelling face [Recovered/Resolved]
  - Diarrhoea [Recovered/Resolved]
  - Cardiomyopathy [Recovered/Resolved]
